FAERS Safety Report 9626825 (Version 1)
Quarter: 2013Q4

REPORT INFORMATION
  Report Type: Spontaneous
  Country: US (occurrence: US)
  Receive Date: 20131016
  Receipt Date: 20131016
  Transmission Date: 20140711
  Serious: No
  Sender: FDA-Public Use
  Company Number: US-TEVA-438364USA

PATIENT
  Age: 55 Year
  Sex: Female

DRUGS (1)
  1. PROAIR HFA [Suspect]

REACTIONS (2)
  - Bronchial irritation [Unknown]
  - Drug effect decreased [Unknown]
